FAERS Safety Report 21761601 (Version 11)
Quarter: 2023Q2

REPORT INFORMATION
  Report Type: Spontaneous
  Country: US (occurrence: US)
  Receive Date: 20221221
  Receipt Date: 20230623
  Transmission Date: 20230722
  Serious: Yes (Hospitalization, Other)
  Sender: FDA-Public Use
  Company Number: US-PFIZER INC-PV202200128417

PATIENT
  Age: 80 Year
  Sex: Male
  Weight: 107.05 kg

DRUGS (12)
  1. BRAFTOVI [Suspect]
     Active Substance: ENCORAFENIB
     Indication: Nodular melanoma
     Dosage: 225 MG, 1X/DAY, (TAKE 3 CAPSULE OF 75 MG BY MOUTH ONE TIME A DAY)
     Route: 048
  2. BRAFTOVI [Suspect]
     Active Substance: ENCORAFENIB
     Indication: Malignant melanoma
     Dosage: 75 MG, 1X/DAY (4 OF THE BRAFTOVI)
  3. BRAFTOVI [Suspect]
     Active Substance: ENCORAFENIB
     Dosage: 300 MG, 1X/DAY
     Route: 048
  4. MEKTOVI [Suspect]
     Active Substance: BINIMETINIB
     Indication: Nodular melanoma
     Dosage: 15 MG
  5. MEKTOVI [Suspect]
     Active Substance: BINIMETINIB
     Indication: Malignant melanoma
     Dosage: 15 MG, 2X/DAY (3 PILLS TWICE A DAY MORNING AND NIGHT)
  6. MEKTOVI [Suspect]
     Active Substance: BINIMETINIB
     Dosage: 45 MG, 2X/DAY
     Route: 048
  7. FLOMAX [Concomitant]
     Active Substance: TAMSULOSIN HYDROCHLORIDE
     Dosage: 20.4 MG, DAILY (IN 24 HOURS)
  8. METOPROLOL SUCCINATE [Concomitant]
     Active Substance: METOPROLOL SUCCINATE
     Dosage: 50 MG, 1X/DAY (ONE TABLET ONCE A DAY)
  9. WARFARIN [Concomitant]
     Active Substance: WARFARIN
     Dosage: 7.5 MG, ALTERNATE DAY (ON FRIDAY AND MONDAY)
  10. WARFARIN [Concomitant]
     Active Substance: WARFARIN
     Dosage: 20 MG, ALTERNATE DAY (ON OTHER DAYS OF THE WEEK)
  11. ZYRTEC [Concomitant]
     Active Substance: CETIRIZINE HYDROCHLORIDE
     Indication: Hypersensitivity
     Dosage: 10 MG, DAILY (1 TABLET EVERY 24 HOURS)
  12. PEPCID [Concomitant]
     Active Substance: FAMOTIDINE
     Indication: Antacid therapy
     Dosage: 20 MG

REACTIONS (19)
  - Asthenia [Unknown]
  - Fatigue [Unknown]
  - Lyme disease [Unknown]
  - Urinary tract infection [Unknown]
  - Interstitial lung disease [Unknown]
  - Pneumonitis [Unknown]
  - Hypoacusis [Unknown]
  - Anaemia [Unknown]
  - Off label use [Unknown]
  - Dizziness [Unknown]
  - Back pain [Unknown]
  - Pain [Unknown]
  - Dyspnoea [Not Recovered/Not Resolved]
  - Pleurisy [Unknown]
  - Lung disorder [Unknown]
  - Multiple allergies [Unknown]
  - Neoplasm progression [Unknown]
  - Mobility decreased [Unknown]
  - Sleep disorder [Unknown]

NARRATIVE: CASE EVENT DATE: 20230403
